FAERS Safety Report 4970445-X (Version None)
Quarter: 2006Q2

REPORT INFORMATION
  Report Type: 
  Country: None (occurrence: None)
  Receive Date: 20060412
  Receipt Date: 20051222
  Transmission Date: 20061013
  Serious: Yes (Hospitalization, Other)
  Sender: FDA-Public Use
  Company Number: 2005AP06604

PATIENT
  Age: 22172 Day
  Sex: Female
  Weight: 30 kg

DRUGS (13)
  1. IRESSA [Suspect]
     Indication: LUNG ADENOCARCINOMA STAGE IV
     Route: 048
     Dates: start: 20051122, end: 20051208
  2. IRESSA [Suspect]
     Indication: NON-SMALL CELL LUNG CANCER STAGE IV
     Route: 048
     Dates: start: 20051122, end: 20051208
  3. IRESSA [Suspect]
     Route: 048
     Dates: start: 20051209, end: 20051222
  4. IRESSA [Suspect]
     Route: 048
     Dates: start: 20051209, end: 20051222
  5. PL [Suspect]
     Indication: NASOPHARYNGITIS
     Route: 048
     Dates: start: 20051216
  6. CRAVIT [Suspect]
     Indication: NASOPHARYNGITIS
     Route: 048
     Dates: start: 20051216
  7. TAKEPRON [Concomitant]
     Indication: DUODENAL ULCER
     Route: 048
     Dates: start: 20051031, end: 20051107
  8. MUCOSTA [Concomitant]
     Indication: DUODENAL ULCER
     Route: 048
     Dates: start: 20051031
  9. MAGNESIUM OXIDE [Concomitant]
     Indication: CONSTIPATION
     Route: 048
     Dates: start: 20051102
  10. PURSENNID [Concomitant]
     Indication: CONSTIPATION
     Route: 048
     Dates: start: 20051102
  11. ALLOID [Concomitant]
     Indication: DUODENAL ULCER
     Route: 048
     Dates: start: 20051104
  12. ACIDLESS [Concomitant]
     Indication: DUODENAL ULCER
     Route: 048
     Dates: start: 20051105
  13. PARIET [Concomitant]
     Indication: DUODENAL ULCER
     Route: 048
     Dates: start: 20051108

REACTIONS (3)
  - INTERSTITIAL LUNG DISEASE [None]
  - PNEUMOTHORAX [None]
  - RASH [None]
